FAERS Safety Report 11636940 (Version 3)
Quarter: 2015Q4

REPORT INFORMATION
  Report Type: Spontaneous
  Country: HU (occurrence: HU)
  Receive Date: 20151016
  Receipt Date: 20151202
  Transmission Date: 20160304
  Serious: Yes (Hospitalization, Other)
  Sender: FDA-Public Use
  Company Number: HU-PFIZER INC-2015340608

PATIENT
  Age: 65 Year
  Sex: Male

DRUGS (7)
  1. INLYTA [Suspect]
     Active Substance: AXITINIB
     Indication: CLEAR CELL RENAL CELL CARCINOMA
     Dosage: 5 MG, 2X/DAY
     Route: 048
     Dates: start: 20150418
  2. LISONORM [Concomitant]
     Dosage: 1 DF, 1X/DAY, 20/10 MG
  3. CARDURAXL [Concomitant]
     Dosage: 4 MG, 1X/DAY
  4. MILURIT [Concomitant]
     Active Substance: ALLOPURINOL
     Dosage: 100 MG, 1X/DAY
  5. MERCKFORMIN [Concomitant]
     Active Substance: METFORMIN HYDROCHLORIDE
     Dosage: 850, 3X1/4
  6. BISOCARD [Concomitant]
     Active Substance: BISOPROLOL
     Dosage: 5 MG, 1X/DAY
  7. AFLAMIN [Concomitant]
     Dosage: 100 MG, 3X/DAY

REACTIONS (9)
  - Hypoglycaemia [Unknown]
  - Pyrexia [Recovered/Resolved]
  - Femoral artery occlusion [Unknown]
  - Anaemia [Unknown]
  - Iliac artery occlusion [Unknown]
  - Disease progression [Unknown]
  - Clear cell renal cell carcinoma [Unknown]
  - Decreased appetite [Recovered/Resolved]
  - Nausea [Recovered/Resolved]

NARRATIVE: CASE EVENT DATE: 2015
